FAERS Safety Report 23326790 (Version 1)
Quarter: 2023Q4

REPORT INFORMATION
  Report Type: Report from Study
  Country: CN (occurrence: CN)
  Receive Date: 20231221
  Receipt Date: 20231221
  Transmission Date: 20240110
  Serious: Yes (Hospitalization)
  Sender: FDA-Public Use
  Company Number: CN-Merck Healthcare KGaA-2023494180

PATIENT
  Age: 74 Year

DRUGS (3)
  1. METFORMIN [Suspect]
     Active Substance: METFORMIN HYDROCHLORIDE
     Indication: Diabetes mellitus
     Route: 048
  2. INSULIN NOS [Concomitant]
     Active Substance: INSULIN NOS
     Indication: Diabetes mellitus
     Route: 058
  3. ACARBOSE [Concomitant]
     Active Substance: ACARBOSE
     Indication: Diabetes mellitus
     Route: 048

REACTIONS (8)
  - Palpitations [Unknown]
  - Chest discomfort [Unknown]
  - Diarrhoea [Unknown]
  - Lactic acidosis [Unknown]
  - Ill-defined disorder [Unknown]
  - Blood glucose increased [Unknown]
  - Therapeutic product effect incomplete [Unknown]
  - Prescription drug used without a prescription [Unknown]
